FAERS Safety Report 6629670-4 (Version None)
Quarter: 2010Q1

REPORT INFORMATION
  Report Type: 
  Country: None (occurrence: None)
  Receive Date: 20100311
  Receipt Date: 20100304
  Transmission Date: 20100710
  Serious: Yes (Other)
  Sender: FDA-Public Use
  Company Number: JP-ABBOTT-10P-087-0626554-00

PATIENT
  Sex: Female

DRUGS (1)
  1. CLARITH [Suspect]
     Indication: UPPER RESPIRATORY TRACT INFLAMMATION
     Route: 048
     Dates: start: 20091119

REACTIONS (1)
  - INTERSTITIAL LUNG DISEASE [None]
